FAERS Safety Report 21646934 (Version 2)
Quarter: 2022Q4

REPORT INFORMATION
  Report Type: Report from Study
  Country: HK (occurrence: HK)
  Receive Date: 20221127
  Receipt Date: 20221212
  Transmission Date: 20230113
  Serious: Yes (Other)
  Sender: FDA-Public Use
  Company Number: HK-TEVA-2022-HK-2829003

PATIENT

DRUGS (3)
  1. IRINOTECAN [Suspect]
     Active Substance: IRINOTECAN
     Indication: Sarcoma
     Dosage: AIT REGIMEN; FOR 5 DAYS, GIVEN AT A 3 WEEKLY INTERVAL, 50 MG/M2
     Route: 042
  2. APATINIB [Suspect]
     Active Substance: APATINIB
     Indication: Sarcoma
     Dosage: AIT REGIMEN; DOSE BASED ON BODY SURFACE AREA, GIVEN AT A 3 WEEKLY INTERVAL
     Route: 048
  3. TEMOZOLOMIDE [Suspect]
     Active Substance: TEMOZOLOMIDE
     Indication: Sarcoma
     Dosage: AIT REGIMEN; FOR 5 DAYS, GIVEN AT A 3 WEEKLY INTERVAL, 100 MG/M2
     Route: 048

REACTIONS (2)
  - Gastrointestinal haemorrhage [Unknown]
  - Pneumatosis intestinalis [Unknown]
